FAERS Safety Report 5553579-0 (Version None)
Quarter: 2007Q4

REPORT INFORMATION
  Report Type: 
  Country: None (occurrence: None)
  Receive Date: 20071213
  Receipt Date: 20071116
  Transmission Date: 20080405
  Serious: No
  Sender: FDA-Public Use
  Company Number: US-BAYER-200715385NA

PATIENT

DRUGS (1)
  1. MAGNEVIST [Suspect]
     Indication: NUCLEAR MAGNETIC RESONANCE IMAGING

REACTIONS (3)
  - PRURITUS [None]
  - THROAT TIGHTNESS [None]
  - VOMITING [None]
